FAERS Safety Report 6031971-8 (Version None)
Quarter: 2009Q1

REPORT INFORMATION
  Report Type: 
  Country: None (occurrence: None)
  Receive Date: 20090108
  Receipt Date: 20090105
  Transmission Date: 20090719
  Serious: Yes (Death, Life-Threatening, Hospitalization, Other)
  Sender: FDA-Public Use
  Company Number: PHHO2008DE13466

PATIENT
  Sex: Male
  Weight: 85 kg

DRUGS (8)
  1. STI571/CGP57148B T35717+CAPS [Suspect]
     Indication: PROSTATE CANCER
     Dosage: 400 MG, BID
     Route: 048
     Dates: start: 20080617
  2. OVASTAT [Concomitant]
  3. DEXA [Concomitant]
  4. PIOGLITAZONE [Concomitant]
  5. TREOSULFAN [Concomitant]
  6. ETORICOXIB [Concomitant]
  7. HYDROCHLOROTHIAZIDE [Concomitant]
  8. PANTOPRAZOLE [Concomitant]

REACTIONS (8)
  - ACUTE RESPIRATORY DISTRESS SYNDROME [None]
  - DYSPNOEA [None]
  - ENDOTRACHEAL INTUBATION [None]
  - OEDEMA PERIPHERAL [None]
  - PNEUMONIA [None]
  - PRODUCTIVE COUGH [None]
  - PULMONARY OEDEMA [None]
  - SEPSIS [None]
